FAERS Safety Report 25941260 (Version 1)
Quarter: 2025Q4

REPORT INFORMATION
  Report Type: Spontaneous
  Country: CN (occurrence: CN)
  Receive Date: 20251020
  Receipt Date: 20251020
  Transmission Date: 20260117
  Serious: Yes (Life-Threatening, Hospitalization, Other)
  Sender: PFIZER
  Company Number: CN-PFIZER INC-PV202500122416

PATIENT
  Age: 23 Year
  Sex: Female

DRUGS (1)
  1. MISOPROSTOL [Suspect]
     Active Substance: MISOPROSTOL
     Indication: Induction of cervix ripening
     Dosage: 25 UG, SINGLE AT 12:00 NOON
     Route: 067

REACTIONS (3)
  - Uterine rupture [Recovered/Resolved]
  - Off label use [Unknown]
  - Off label use [Unknown]
